FAERS Safety Report 5816474-5 (Version None)
Quarter: 2008Q3

REPORT INFORMATION
  Report Type: 
  Country: None (occurrence: None)
  Receive Date: 20080721
  Receipt Date: 20080716
  Transmission Date: 20090109
  Serious: Yes (Hospitalization)
  Sender: FDA-Public Use
  Company Number: JP-MERCK-0807USA03153

PATIENT
  Age: 85 Year
  Sex: Female

DRUGS (6)
  1. HYZAAR [Suspect]
     Indication: HYPERTENSION
     Route: 048
     Dates: start: 20080604, end: 20080624
  2. TAKEPRON [Concomitant]
     Route: 065
  3. ARICEPT [Concomitant]
     Route: 048
  4. URSO 250 [Concomitant]
     Route: 048
  5. TICLOPIDINE HYDROCHLORIDE [Concomitant]
     Route: 048
  6. SEROQUEL [Concomitant]
     Route: 048

REACTIONS (1)
  - HYPOGLYCAEMIA [None]
